FAERS Safety Report 8742853 (Version 2)
Quarter: 2012Q4

REPORT INFORMATION
  Report Type: 
  Country: US (occurrence: US)
  Receive Date: 20120824
  Receipt Date: 20121003
  Transmission Date: 20130627
  Serious: Yes (Life-Threatening, Hospitalization)
  Sender: FDA-Public Use
  Company Number: US-CELGENEUS-163-21880-12072572

PATIENT
  Age: 58 None
  Sex: Male
  Weight: 68.1 kg

DRUGS (5)
  1. REVLIMID [Suspect]
     Indication: WALDENSTROM^S MACROGLOBULINEMIA
     Dosage: 10 Milligram
     Route: 048
     Dates: start: 200804
  2. REVLIMID [Suspect]
     Dosage: Alternate 15mg/10mg
     Route: 048
     Dates: start: 201003
  3. VALTREX [Concomitant]
     Indication: HERPES ZOSTER
     Dosage: 500 Milligram
     Route: 048
  4. NAPROXEN [Concomitant]
     Indication: ARTHRITIC PAINS
     Dosage: 1000 Milligram
     Route: 048
     Dates: start: 2009
  5. SULFASALAZINE [Concomitant]
     Indication: RHEUMATOID ARTHRITIS
     Dosage: 1000 Milligram
     Route: 048
     Dates: start: 2012

REACTIONS (2)
  - Large intestine perforation [Recovering/Resolving]
  - Diarrhoea [Recovered/Resolved]
